FAERS Safety Report 4733225-6 (Version None)
Quarter: 2005Q3

REPORT INFORMATION
  Report Type: 
  Country: None (occurrence: None)
  Receive Date: 20050801
  Receipt Date: 20050801
  Transmission Date: 20060218
  Serious: Yes (Hospitalization)
  Sender: FDA-Public Use
  Company Number: None

PATIENT
  Age: 80 Year
  Sex: Male

DRUGS (7)
  1. FUROSEMIDE [Suspect]
     Indication: HYPERTENSION
     Dosage: 40 MG BID
     Dates: start: 20040701
  2. METOPROLOL [Suspect]
     Indication: HYPERTENSION
     Dosage: 100 MG BID
     Dates: start: 20050201
  3. HYDRALAZINE [Concomitant]
  4. NPH INSULIN [Concomitant]
  5. FOSINOPRIL SODIUM [Concomitant]
  6. POTASSIUM CHLORIDE [Concomitant]
  7. ZOCOR [Concomitant]

REACTIONS (2)
  - BRADYCARDIA [None]
  - RENAL FAILURE ACUTE [None]
